FAERS Safety Report 9614185 (Version 1)
Quarter: 2013Q4

REPORT INFORMATION
  Report Type: Spontaneous
  Country: US (occurrence: US)
  Receive Date: 20131011
  Receipt Date: 20131011
  Transmission Date: 20140711
  Serious: Yes (Hospitalization)
  Sender: FDA-Public Use
  Company Number: US-BIOGENIDEC-2013BI096772

PATIENT
  Age: 46 Year
  Sex: Female

DRUGS (11)
  1. TECFIDERA [Suspect]
     Indication: MULTIPLE SCLEROSIS
     Route: 048
     Dates: start: 20130821, end: 20130926
  2. LITHIUM [Concomitant]
  3. LAMICTAL [Concomitant]
  4. BUSPAR [Concomitant]
  5. KLONOPIN [Concomitant]
  6. CYMBALTA [Concomitant]
  7. LOVAZA [Concomitant]
  8. ATENOLOL [Concomitant]
  9. PRENATAL VITAMIN [Concomitant]
  10. BIOTEN [Concomitant]
  11. VITAMIN B [Concomitant]

REACTIONS (2)
  - Loss of consciousness [Recovered/Resolved]
  - Dizziness [Recovered/Resolved]
